FAERS Safety Report 7226203-9 (Version None)
Quarter: 2011Q1

REPORT INFORMATION
  Report Type: 
  Country: None (occurrence: None)
  Receive Date: 20110114
  Receipt Date: 20101231
  Transmission Date: 20110831
  Serious: Yes (Other)
  Sender: FDA-Public Use
  Company Number: PHHY2010US89576

PATIENT
  Age: 62 Year
  Sex: Male

DRUGS (3)
  1. OXYCODONE HYDROCHLORIDE [Suspect]
     Indication: ANALGESIC THERAPY
     Dosage: 160 MG / 8 HR
  2. METHADONE HCL [Suspect]
     Dosage: 20 MG EVERY 6 HOURS
  3. METHADONE HCL [Suspect]
     Dosage: 40 MG/ 8 HR

REACTIONS (5)
  - BALANCE DISORDER [None]
  - FALL [None]
  - OVERDOSE [None]
  - SOMNOLENCE [None]
  - LOSS OF CONSCIOUSNESS [None]
